FAERS Safety Report 6663038-X (Version None)
Quarter: 2010Q2

REPORT INFORMATION
  Report Type: 
  Country: None (occurrence: None)
  Receive Date: 20100401
  Receipt Date: 20100326
  Transmission Date: 20101027
  Serious: Yes (Death, Other)
  Sender: FDA-Public Use
  Company Number: DE-ELI_LILLY_AND_COMPANY-DE201003007501

PATIENT
  Sex: Male

DRUGS (10)
  1. HUMALOG [Suspect]
     Indication: DIABETES MELLITUS
     Dosage: 36 D/F, UNKNOWN
     Route: 065
     Dates: start: 20060101, end: 20100307
  2. NEURO-RATIOPHARM FOR INJECTION [Concomitant]
     Indication: POLYNEUROPATHY
     Dosage: UNK, UNKNOWN
     Route: 065
     Dates: start: 20081101, end: 20100307
  3. TORSEMIDE [Concomitant]
     Indication: HYPERTENSION
     Dosage: 200 MG, UNKNOWN
     Route: 065
     Dates: start: 20081101, end: 20100307
  4. ALLOPURINOL [Concomitant]
     Indication: METABOLIC SYNDROME
     Dosage: UNK, UNKNOWN
     Route: 065
     Dates: start: 20081101, end: 20100307
  5. SPIRONOLACTONE [Concomitant]
     Indication: CARDIAC FAILURE
     Dosage: 50 MG, UNKNOWN
     Route: 065
     Dates: start: 20081101, end: 20100307
  6. SIMVASTATIN [Concomitant]
     Indication: DYSLIPIDAEMIA
     Dosage: 40 MG, UNKNOWN
     Route: 065
     Dates: start: 20081101, end: 20100307
  7. METOPROLOL TARTRATE [Concomitant]
     Indication: CORONARY ARTERY DISEASE
     Dosage: 47.5 MG, UNKNOWN
     Route: 065
     Dates: start: 20081101, end: 20100307
  8. MARCUMAR [Concomitant]
     Indication: ATRIAL FIBRILLATION
     Dosage: UNK, UNKNOWN
     Route: 065
     Dates: start: 20020101, end: 20100307
  9. PANTOPRAZOLE SODIUM [Concomitant]
     Indication: GASTRIC DISORDER
     Dosage: 40 MG, UNKNOWN
     Route: 065
     Dates: start: 20081101, end: 20100307
  10. LANTUS [Concomitant]
     Indication: DIABETES MELLITUS
     Dosage: 36 D/F, UNKNOWN
     Route: 065
     Dates: start: 20060101, end: 20100307

REACTIONS (2)
  - DEATH [None]
  - MYOCARDIAL INFARCTION [None]
